FAERS Safety Report 6970583-6 (Version None)
Quarter: 2010Q3

REPORT INFORMATION
  Report Type: 
  Country: None (occurrence: None)
  Receive Date: 20100908
  Receipt Date: 20100902
  Transmission Date: 20110219
  Serious: Yes (Death)
  Sender: FDA-Public Use
  Company Number: US-CELGENEUS-163-21880-10090275

PATIENT
  Sex: Male

DRUGS (3)
  1. REVLIMID [Suspect]
     Indication: MULTIPLE MYELOMA
     Route: 048
     Dates: start: 20090901, end: 20091001
  2. REVLIMID [Suspect]
     Route: 048
     Dates: start: 20091001
  3. REVLIMID [Suspect]
     Route: 048
     Dates: start: 20091201

REACTIONS (1)
  - DEATH [None]
